FAERS Safety Report 12632761 (Version 2)
Quarter: 2016Q3

REPORT INFORMATION
  Report Type: Spontaneous
  Country: US (occurrence: US)
  Receive Date: 20160808
  Receipt Date: 20160808
  Transmission Date: 20161109
  Serious: No
  Sender: FDA-Public Use
  Company Number: US-BEH-2015056834

PATIENT
  Sex: Female
  Weight: 56 kg

DRUGS (5)
  1. LEVAQUIN [Concomitant]
     Active Substance: LEVOFLOXACIN
  2. DIPHENHYDRAMINE. [Concomitant]
     Active Substance: DIPHENHYDRAMINE
  3. EPIPEN [Concomitant]
     Active Substance: EPINEPHRINE
  4. HIZENTRA [Suspect]
     Active Substance: HUMAN IMMUNOGLOBULIN G
     Indication: IMMUNODEFICIENCY COMMON VARIABLE
     Route: 058
  5. AVELOX [Concomitant]
     Active Substance: MOXIFLOXACIN HYDROCHLORIDE

REACTIONS (1)
  - Sinusitis [Unknown]
